FAERS Safety Report 12256587 (Version 2)
Quarter: 2016Q2

REPORT INFORMATION
  Report Type: Spontaneous
  Country: US (occurrence: US)
  Receive Date: 20160412
  Receipt Date: 20160425
  Transmission Date: 20160815
  Serious: Yes (Other)
  Sender: FDA-Public Use
  Company Number: US-VIIV HEALTHCARE LIMITED-US2016GSK048530

PATIENT
  Age: 52 Year
  Sex: Male

DRUGS (8)
  1. DIOVAN [Concomitant]
     Active Substance: VALSARTAN
  2. JANUMET [Concomitant]
     Active Substance: METFORMIN HYDROCHLORIDE\SITAGLIPTIN PHOSPHATE
  3. GLIMEPIRIDE. [Concomitant]
     Active Substance: GLIMEPIRIDE
  4. PROGRAF [Concomitant]
     Active Substance: TACROLIMUS\TACROLIMUS ANHYDROUS
  5. CALCIUM [Concomitant]
     Active Substance: CALCIUM
  6. ALLOPURINOL. [Concomitant]
     Active Substance: ALLOPURINOL
  7. EPIVIR HBV [Suspect]
     Active Substance: LAMIVUDINE
     Indication: CHRONIC HEPATITIS B
     Dosage: UNK, U
     Dates: start: 2002
  8. MYFORTIC [Concomitant]
     Active Substance: MYCOPHENOLATE SODIUM

REACTIONS (8)
  - Liver transplant [Unknown]
  - Renal transplant [Unknown]
  - Rehabilitation therapy [Unknown]
  - Cardiac ablation [Unknown]
  - Diabetes mellitus [Not Recovered/Not Resolved]
  - Malaise [Unknown]
  - Sepsis [Unknown]
  - Hepatic artery thrombosis [Unknown]

NARRATIVE: CASE EVENT DATE: 2002
